FAERS Safety Report 18100337 (Version 2)
Quarter: 2020Q3

REPORT INFORMATION
  Report Type: Spontaneous
  Country: DE (occurrence: DE)
  Receive Date: 20200731
  Receipt Date: 20200821
  Transmission Date: 20201103
  Serious: Yes (Other)
  Sender: FDA-Public Use
  Company Number: DE-ALLERGAN-2025583US

PATIENT
  Sex: Male

DRUGS (2)
  1. LOPERAMID [Concomitant]
     Active Substance: LOPERAMIDE
     Dosage: AS NEEDED
  2. OZURDEX [Suspect]
     Active Substance: DEXAMETHASONE
     Indication: UVEITIS
     Dosage: 0.7 MG, SINGLE
     Route: 031
     Dates: start: 20200604, end: 20200629

REACTIONS (3)
  - Device dislocation [Unknown]
  - Corneal decompensation [Not Recovered/Not Resolved]
  - Vision blurred [Unknown]

NARRATIVE: CASE EVENT DATE: 20200612
